FAERS Safety Report 21989287 (Version 2)
Quarter: 2023Q2

REPORT INFORMATION
  Report Type: Report from Study
  Country: AU (occurrence: AU)
  Receive Date: 20230214
  Receipt Date: 20230506
  Transmission Date: 20230721
  Serious: Yes (Hospitalization, Other)
  Sender: FDA-Public Use
  Company Number: AU-002147023-NVSC2023AU028056

PATIENT
  Sex: Female

DRUGS (1)
  1. COSENTYX [Suspect]
     Active Substance: SECUKINUMAB
     Indication: Ankylosing spondylitis
     Dosage: UNK
     Route: 058
     Dates: start: 20220519

REACTIONS (10)
  - Cerebrovascular accident [Unknown]
  - Cardiac disorder [Unknown]
  - Cerebral haemorrhage [Unknown]
  - Thyroid disorder [Unknown]
  - Back pain [Not Recovered/Not Resolved]
  - Ill-defined disorder [Unknown]
  - Vulvovaginal candidiasis [Recovered/Resolved]
  - Ear pain [Unknown]
  - Sinusitis [Unknown]
  - Oral pain [Unknown]
